FAERS Safety Report 5970969-2 (Version None)
Quarter: 2008Q4

REPORT INFORMATION
  Report Type: 
  Country: None (occurrence: None)
  Receive Date: 20081128
  Receipt Date: 20081119
  Transmission Date: 20090506
  Serious: Yes (Other)
  Sender: FDA-Public Use
  Company Number: PHHY2008BR29442

PATIENT
  Age: 78 Year
  Sex: Female

DRUGS (1)
  1. GALVUS MET COMBIPACK [Suspect]
     Dosage: 850/50 MG

REACTIONS (1)
  - BLOOD GLUCOSE INCREASED [None]
